FAERS Safety Report 7381330-0 (Version None)
Quarter: 2011Q1

REPORT INFORMATION
  Report Type: 
  Country: None (occurrence: None)
  Receive Date: 20110321
  Receipt Date: 20110308
  Transmission Date: 20110831
  Serious: Yes (Hospitalization)
  Sender: FDA-Public Use
  Company Number: B0706151A

PATIENT
  Age: 41 Year
  Sex: Male

DRUGS (3)
  1. CARVEDILOL [Suspect]
     Indication: PRODUCT USED FOR UNKNOWN INDICATION
  2. FRUSEMIDE [Concomitant]
  3. ACE INHIBITOR [Concomitant]

REACTIONS (2)
  - PUSTULAR PSORIASIS [None]
  - IMPLANT SITE INFECTION [None]
